FAERS Safety Report 10642589 (Version 1)
Quarter: 2014Q4

REPORT INFORMATION
  Report Type: Report from Study
  Country: TH (occurrence: TH)
  Receive Date: 20141210
  Receipt Date: 20141210
  Transmission Date: 20150529
  Serious: Yes (Death, Hospitalization)
  Sender: FDA-Public Use
  Company Number: PHHY2014TH158412

PATIENT
  Age: 71 Year
  Sex: Female

DRUGS (1)
  1. GLIVEC [Suspect]
     Active Substance: IMATINIB MESYLATE
     Indication: GASTROINTESTINAL STROMAL TUMOUR
     Dosage: 800 MG, UNK
     Route: 065
     Dates: end: 20140924

REACTIONS (5)
  - Biliary tract infection [Fatal]
  - Malignant neoplasm progression [Fatal]
  - Gastrointestinal stromal tumour [Fatal]
  - Haematocrit decreased [Unknown]
  - No therapeutic response [Unknown]

NARRATIVE: CASE EVENT DATE: 20140924
